FAERS Safety Report 16132110 (Version 1)
Quarter: 2019Q1

REPORT INFORMATION
  Report Type: Spontaneous
  Country: IT (occurrence: IT)
  Receive Date: 20190329
  Receipt Date: 20190329
  Transmission Date: 20190418
  Serious: Yes (Other)
  Sender: FDA-Public Use
  Company Number: IT-ROCHE-2292375

PATIENT
  Age: 73 Year
  Sex: Male

DRUGS (3)
  1. AVASTIN [Suspect]
     Active Substance: BEVACIZUMAB
     Indication: COLON CANCER
     Dosage: 25 MG/ML?MOST RECENT DOSE ON 11/JAN/2019
     Route: 042
     Dates: start: 20181129
  2. CAPECITABINE. [Suspect]
     Active Substance: CAPECITABINE
     Indication: COLON CANCER
     Dosage: MOST RECENT DOSE ON 11/JAN/2019
     Route: 048
     Dates: start: 20181129
  3. OXALIPLATIN. [Suspect]
     Active Substance: OXALIPLATIN
     Indication: COLON CANCER
     Dosage: MOST RECENT DOSE ON 11/JAN/2019
     Route: 042
     Dates: start: 20181129

REACTIONS (1)
  - Tachyarrhythmia [Recovered/Resolved]

NARRATIVE: CASE EVENT DATE: 20190226
